FAERS Safety Report 5687274-4 (Version None)
Quarter: 2008Q1

REPORT INFORMATION
  Report Type: 
  Country: None (occurrence: None)
  Receive Date: 20080328
  Receipt Date: 20061130
  Transmission Date: 20080703
  Serious: No
  Sender: FDA-Public Use
  Company Number: US-BAYER-US-2006-037291

PATIENT
  Age: 42 Year
  Sex: Female
  Weight: 134 kg

DRUGS (8)
  1. MIRENA [Suspect]
     Indication: CONTRACEPTION
     Route: 015
     Dates: start: 20061115
  2. LAMICTAL ^BURROUGHS WELLCOME^ [Concomitant]
  3. LORAZEPAM [Concomitant]
  4. TRAZODONE HCL [Concomitant]
  5. LITHIUM [Concomitant]
  6. METFORMIN HCL [Concomitant]
  7. VASOTEC [Concomitant]
  8. ASPIRIN [Concomitant]

REACTIONS (1)
  - INTRA-UTERINE CONTRACEPTIVE DEVICE EXPELLED [None]
